FAERS Safety Report 10084299 (Version 1)
Quarter: 2014Q2

REPORT INFORMATION
  Report Type: Spontaneous
  Country: DE (occurrence: DE)
  Receive Date: 20140417
  Receipt Date: 20140417
  Transmission Date: 20141212
  Serious: Yes (Other)
  Sender: FDA-Public Use
  Company Number: DE-009507513-1404DEU010053

PATIENT
  Age: 39 Year
  Sex: Male

DRUGS (1)
  1. PROPECIA 1MG FILMTABLETTEN [Suspect]
     Dosage: UNK
     Route: 048

REACTIONS (1)
  - Multiple sclerosis [Recovered/Resolved]
